FAERS Safety Report 21104900 (Version 3)
Quarter: 2022Q3

REPORT INFORMATION
  Report Type: Report from Study
  Country: DE (occurrence: None)
  Receive Date: 20220720
  Receipt Date: 20220815
  Transmission Date: 20221027
  Serious: Yes (Hospitalization)
  Sender: FDA-Public Use
  Company Number: DE-ROCHE-3131966

PATIENT
  Age: 55 Year
  Sex: Male
  Weight: 90 kg

DRUGS (9)
  1. TIRAGOLUMAB [Suspect]
     Active Substance: TIRAGOLUMAB
     Indication: Non-small cell lung cancer
     Dosage: START DATE OF MOST RECENT DOSE OF STUDY DRUG PRIOR TO AE/SAE: 24/MAY/2022?DOSE LAST STUDY DRUG ADMIN
     Route: 042
     Dates: start: 20220131
  2. ATEZOLIZUMAB [Suspect]
     Active Substance: ATEZOLIZUMAB
     Indication: Non-small cell lung cancer
     Dosage: START DATE OF MOST RECENT DOSE OF STUDY DRUG PRIOR TO AE/SAE: 24/MAY/2022?DOSE LAST STUDY DRUG ADMIN
     Route: 041
     Dates: start: 20220131
  3. SAB SIMPLEX [Concomitant]
     Indication: Flatulence
     Route: 065
     Dates: start: 20220208
  4. MOMETASONE FUROATE [Concomitant]
     Active Substance: MOMETASONE FUROATE
     Indication: Psoriasis
     Route: 061
     Dates: start: 20220329, end: 20220426
  5. AMPHOTERICIN B [Concomitant]
     Active Substance: AMPHOTERICIN B
     Route: 048
     Dates: start: 20220609, end: 20220614
  6. PANTOZOL [Concomitant]
     Active Substance: PANTOPRAZOLE SODIUM
     Route: 048
     Dates: start: 20220609
  7. PREDNISOLONE [Concomitant]
     Active Substance: PREDNISOLONE
     Indication: Pyrexia
     Route: 048
     Dates: start: 20220614, end: 20220616
  8. PREDNISOLONE [Concomitant]
     Active Substance: PREDNISOLONE
     Indication: Dysphagia
     Route: 048
     Dates: start: 20220617, end: 20220620
  9. PREDNISOLONE [Concomitant]
     Active Substance: PREDNISOLONE
     Route: 048
     Dates: start: 20220621, end: 20220626

REACTIONS (2)
  - Pyrexia [Not Recovered/Not Resolved]
  - Dysphagia [Recovered/Resolved]

NARRATIVE: CASE EVENT DATE: 20220518
